FAERS Safety Report 13334268 (Version 1)
Quarter: 2017Q1

REPORT INFORMATION
  Report Type: Spontaneous
  Country: US (occurrence: US)
  Receive Date: 20170314
  Receipt Date: 20170314
  Transmission Date: 20170428
  Serious: No
  Sender: FDA-Public Use
  Company Number: US-JNJFOC-20161211129

PATIENT
  Age: 79 Year
  Sex: Female

DRUGS (17)
  1. CRANBERRY. [Concomitant]
     Active Substance: CRANBERRY
     Route: 048
  2. IMBRUVICA [Suspect]
     Active Substance: IBRUTINIB
     Indication: B-CELL SMALL LYMPHOCYTIC LYMPHOMA
     Route: 065
     Dates: start: 20160915, end: 2016
  3. CARDIZEM [Concomitant]
     Active Substance: DILTIAZEM HYDROCHLORIDE
     Route: 048
  4. POTASSIUM [Concomitant]
     Active Substance: POTASSIUM
  5. TRIAMTERENE AND HYDROCHLOROTHIAZIDE [Concomitant]
     Active Substance: HYDROCHLOROTHIAZIDE\TRIAMTERENE
  6. ALBUTEROL SULFATE. [Concomitant]
     Active Substance: ALBUTEROL SULFATE
  7. ZYRTEC [Concomitant]
     Active Substance: CETIRIZINE HYDROCHLORIDE
     Route: 048
  8. PRILOSEC [Concomitant]
     Active Substance: OMEPRAZOLE MAGNESIUM
  9. AMLODIPINE [Concomitant]
     Active Substance: AMLODIPINE BESYLATE
  10. DEXTRIN [Concomitant]
     Active Substance: ICODEXTRIN
  11. FISH OIL [Concomitant]
     Active Substance: FISH OIL
  12. GLUCOSAMINE HCL [Concomitant]
     Active Substance: GLUCOSAMINE
     Route: 048
  13. HYDROCHLOROTHIAZIDE. [Concomitant]
     Active Substance: HYDROCHLOROTHIAZIDE
     Route: 048
     Dates: start: 20161031
  14. COQ10 [Concomitant]
     Active Substance: UBIDECARENONE
  15. ASPIRIN. [Concomitant]
     Active Substance: ASPIRIN
  16. MONASCUS PURPUREUS [Concomitant]
     Active Substance: RED YEAST
  17. ZYDELIG [Concomitant]
     Active Substance: IDELALISIB
     Route: 048
     Dates: start: 20161129

REACTIONS (4)
  - Dyspnoea [Recovered/Resolved]
  - Heart rate increased [Recovered/Resolved]
  - Dizziness [Recovered/Resolved]
  - Atrial fibrillation [Recovered/Resolved]

NARRATIVE: CASE EVENT DATE: 20161125
